FAERS Safety Report 10961949 (Version 1)
Quarter: 2015Q1

REPORT INFORMATION
  Report Type: Spontaneous
  Country: JP (occurrence: JP)
  Receive Date: 20150327
  Receipt Date: 20150327
  Transmission Date: 20150721
  Serious: Yes (Other)
  Sender: FDA-Public Use
  Company Number: JP-BAYER-2015-050413

PATIENT
  Age: 57 Year
  Sex: Male

DRUGS (4)
  1. NEXAVAR [Suspect]
     Active Substance: SORAFENIB
     Indication: METASTATIC RENAL CELL CARCINOMA
     Dosage: 200 MG, QOD
  2. ZOLEDRONIC ACID [Concomitant]
     Active Substance: ZOLEDRONIC ACID
     Indication: METASTASES TO BONE
     Dosage: 4 MG, Q1MON
     Route: 042
  3. INTERFERON [Suspect]
     Active Substance: INTERFERON
     Indication: METASTATIC RENAL CELL CARCINOMA
     Dosage: 3 MIU, BIW
     Route: 058
  4. NEXAVAR [Suspect]
     Active Substance: SORAFENIB
     Indication: METASTATIC RENAL CELL CARCINOMA
     Dosage: 200 MG, QOD

REACTIONS (3)
  - Pyrexia [Recovered/Resolved]
  - Renal impairment [Recovered/Resolved]
  - Self-medication [None]
